FAERS Safety Report 7570887-2 (Version None)
Quarter: 2011Q2

REPORT INFORMATION
  Report Type: 
  Country: None (occurrence: None)
  Receive Date: 20110525
  Receipt Date: 20110425
  Transmission Date: 20111010
  Serious: No
  Sender: FDA-Public Use
  Company Number: 327173

PATIENT
  Age: 72 Year
  Sex: Female

DRUGS (4)
  1. LISINOPRIL [Concomitant]
  2. LOPID [Concomitant]
  3. GLIPIIZDE (GLIPIZIDE) [Concomitant]
  4. VICTOZA [Suspect]
     Indication: TYPE 2 DIABETES MELLITUS
     Dosage: SUBCUTANEOUS
     Route: 058
     Dates: start: 20110401

REACTIONS (5)
  - ABDOMINAL PAIN UPPER [None]
  - DRUG INEFFECTIVE [None]
  - FATIGUE [None]
  - BLOOD GLUCOSE INCREASED [None]
  - NAUSEA [None]
